FAERS Safety Report 25903939 (Version 1)
Quarter: 2025Q4

REPORT INFORMATION
  Report Type: Spontaneous
  Country: CN (occurrence: CN)
  Receive Date: 20251010
  Receipt Date: 20251010
  Transmission Date: 20260118
  Serious: Yes (Hospitalization, Other)
  Sender: UCB
  Company Number: CN-UCBSA-2025062252

PATIENT
  Age: 0 Year
  Sex: Male
  Weight: 3.5 kg

DRUGS (1)
  1. CIMZIA [Suspect]
     Active Substance: CERTOLIZUMAB PEGOL
     Indication: Ankylosing spondylitis
     Dosage: 200 MILLIGRAM, EV 2 WEEKS(QOW)
     Route: 064
     Dates: start: 202412

REACTIONS (9)
  - Hypoglycaemia neonatal [Recovered/Resolved]
  - Neonatal pneumonia [Recovered/Resolved]
  - Jaundice neonatal [Recovered/Resolved]
  - Inguinal hernia [Unknown]
  - Umbilical hernia [Unknown]
  - Umbilical hernia repair [Recovering/Resolving]
  - Inguinal hernia repair [Recovering/Resolving]
  - Maternal exposure during pregnancy [Unknown]
  - Exposure via breast milk [Unknown]

NARRATIVE: CASE EVENT DATE: 20241201
